FAERS Safety Report 4481001-4 (Version None)
Quarter: 2004Q4

REPORT INFORMATION
  Report Type: 
  Country: None (occurrence: None)
  Receive Date: 20041019
  Receipt Date: 20041004
  Transmission Date: 20050328
  Serious: Yes (Life-Threatening)
  Sender: FDA-Public Use
  Company Number: WAES 0410USA00562

PATIENT
  Age: 49 Year
  Sex: Female

DRUGS (3)
  1. VIOXX [Suspect]
     Indication: MYALGIA
     Dosage: 50 MG DAILY PO
     Route: 048
     Dates: start: 20040304, end: 20040309
  2. MAXZIDE [Concomitant]
  3. TEVETEN [Concomitant]

REACTIONS (2)
  - BLOOD PRESSURE INCREASED [None]
  - HEADACHE [None]
